FAERS Safety Report 18129571 (Version 1)
Quarter: 2020Q3

REPORT INFORMATION
  Report Type: Spontaneous
  Country: US (occurrence: US)
  Receive Date: 20200810
  Receipt Date: 20200810
  Transmission Date: 20201103
  Serious: No
  Sender: FDA-Public Use
  Company Number: US-PERRIGO-20US009411

PATIENT
  Sex: Female
  Weight: 52.16 kg

DRUGS (8)
  1. LATANOPROST. [Concomitant]
     Active Substance: LATANOPROST
     Indication: GLAUCOMA
     Dosage: 1 DROP IN EACH EYE, NIGHTLY
     Route: 047
  2. REFRESH PLUS [Concomitant]
     Active Substance: CARBOXYMETHYLCELLULOSE SODIUM
     Indication: EYE IRRITATION
     Dosage: 1 DROP IN EACH EYE, PRN
     Route: 047
  3. REFRESH PLUS [Concomitant]
     Active Substance: CARBOXYMETHYLCELLULOSE SODIUM
     Indication: OCULAR DISCOMFORT
  4. LORATADINE. [Suspect]
     Active Substance: LORATADINE
     Indication: DRUG HYPERSENSITIVITY
     Dosage: 10 MG, TWICE
     Route: 048
  5. LORATADINE. [Suspect]
     Active Substance: LORATADINE
     Indication: DIZZINESS
  6. LORATADINE. [Suspect]
     Active Substance: LORATADINE
     Indication: HEADACHE
  7. TOVIAZ [Concomitant]
     Active Substance: FESOTERODINE FUMARATE
     Indication: PRODUCT USED FOR UNKNOWN INDICATION
     Dosage: UNKNOWN, UNKNOWN
     Route: 065
  8. ERYTHROMYCIN. [Concomitant]
     Active Substance: ERYTHROMYCIN
     Indication: GLAUCOMA
     Dosage: SMALL AMOUNT, NIGHTLY
     Route: 047
     Dates: start: 201601, end: 202006

REACTIONS (1)
  - Drug ineffective for unapproved indication [Unknown]
